FAERS Safety Report 23799591 (Version 1)
Quarter: 2024Q2

REPORT INFORMATION
  Report Type: Spontaneous
  Country: JP (occurrence: JP)
  Receive Date: 20240430
  Receipt Date: 20240430
  Transmission Date: 20240716
  Serious: Yes (Death)
  Sender: FDA-Public Use
  Company Number: JP-BAYER-2024A062906

PATIENT

DRUGS (1)
  1. VITRAKVI [Suspect]
     Active Substance: LAROTRECTINIB
     Indication: Thyroid cancer
     Dosage: ORAL SOLUTION 20 MG/ML

REACTIONS (1)
  - Death [Fatal]
